FAERS Safety Report 14145316 (Version 2)
Quarter: 2017Q4

REPORT INFORMATION
  Report Type: Spontaneous
  Country: JP (occurrence: JP)
  Receive Date: 20171031
  Receipt Date: 20171117
  Transmission Date: 20180321
  Serious: Yes (Other)
  Sender: FDA-Public Use
  Company Number: JP-ELI_LILLY_AND_COMPANY-JP201710009757

PATIENT
  Age: 93 Year
  Sex: Male
  Weight: 57 kg

DRUGS (10)
  1. PREDONINE [Concomitant]
     Active Substance: PREDNISOLONE
     Dosage: 28 UNK, UNK
     Route: 048
     Dates: start: 20170929
  2. PREDONINE [Concomitant]
     Active Substance: PREDNISOLONE
     Indication: PEMPHIGOID
     Dosage: 35 MG, DAILY
     Route: 048
     Dates: start: 20170916
  3. NEXIUM [Concomitant]
     Active Substance: ESOMEPRAZOLE MAGNESIUM
     Indication: CEREBRAL INFARCTION
     Dosage: 20 MG, DAILY
     Route: 048
  4. GAMMA GLOBULIN [Concomitant]
     Active Substance: IMMUNE GLOBULIN NOS
     Indication: PEMPHIGOID
     Dosage: 20 G, DAILY
     Route: 041
     Dates: start: 20171011, end: 20171015
  5. ONEALFA [Concomitant]
     Active Substance: ALFACALCIDOL
     Indication: OSTEOPOROSIS
     Dosage: 0.5 UG, DAILY
     Route: 048
     Dates: start: 20170915
  6. ARGAMATE [Concomitant]
     Active Substance: CALCIUM POLYSTYRENE SULFONATE
     Indication: HYPERKALAEMIA
     Dosage: 10 G, DAILY
     Route: 048
     Dates: start: 20171002
  7. OLMETEC [Concomitant]
     Active Substance: OLMESARTAN MEDOXOMIL
     Indication: HYPERTENSION
     Dosage: 40 MG, DAILY
     Route: 048
  8. SAMTIREL [Concomitant]
     Active Substance: ATOVAQUONE
     Indication: ANTIFUNGAL PROPHYLAXIS
     Dosage: 1500 MG, DAILY
     Route: 048
     Dates: start: 20171003
  9. TRULICITY [Suspect]
     Active Substance: DULAGLUTIDE
     Indication: TYPE 2 DIABETES MELLITUS
     Dosage: 0.75 MG, UNK
     Route: 058
     Dates: start: 20171010, end: 20171010
  10. BAYASPIRIN [Concomitant]
     Active Substance: ASPIRIN
     Indication: CEREBRAL INFARCTION
     Dosage: 100 MG, DAILY
     Route: 048

REACTIONS (1)
  - Pemphigoid [Recovered/Resolved]

NARRATIVE: CASE EVENT DATE: 20171016
